FAERS Safety Report 6297788-4 (Version None)
Quarter: 2009Q3

REPORT INFORMATION
  Report Type: 
  Country: None (occurrence: None)
  Receive Date: 20090804
  Receipt Date: 20090804
  Transmission Date: 20100115
  Serious: Yes (Hospitalization)
  Sender: FDA-Public Use
  Company Number: None

PATIENT
  Sex: Female
  Weight: 71.9 kg

DRUGS (2)
  1. RALTEGRAVIR [Suspect]
     Dosage: 400 MG, BID, PO
     Route: 048
  2. ENFUVIRITIDE [Suspect]
     Dosage: 100 MG, 2 BID, PO
     Route: 048

REACTIONS (2)
  - GAIT DISTURBANCE [None]
  - MUSCULAR WEAKNESS [None]
